FAERS Safety Report 14884219 (Version 5)
Quarter: 2022Q4

REPORT INFORMATION
  Report Type: Spontaneous
  Country: US (occurrence: US)
  Receive Date: 20180511
  Receipt Date: 20221210
  Transmission Date: 20230113
  Serious: Yes (Hospitalization, Other)
  Sender: FDA-Public Use
  Company Number: US-TEVA-2018-US-890269

PATIENT
  Age: 43 Year
  Sex: Female
  Weight: 43 kg

DRUGS (7)
  1. ACTIQ [Suspect]
     Active Substance: FENTANYL CITRATE
     Indication: Cancer pain
     Route: 048
     Dates: start: 2000, end: 2009
  2. ACTIQ [Suspect]
     Active Substance: FENTANYL CITRATE
     Indication: Rheumatoid arthritis
     Dates: start: 2000, end: 2009
  3. FLAGYL [Concomitant]
     Active Substance: METRONIDAZOLE\METRONIDAZOLE HYDROCHLORIDE
     Indication: Colon cancer
  4. PREDNISONE [Concomitant]
     Active Substance: PREDNISONE
     Indication: Inflammation
  5. VITAMINS [Concomitant]
     Active Substance: VITAMINS
     Indication: Supplementation therapy
  6. ENSURE [Concomitant]
     Active Substance: AMINO ACIDS\DEXTROSE\ELECTROLYTES NOS\SOYBEAN OIL\VITAMINS
     Indication: Product used for unknown indication
  7. NUCYNTA [Concomitant]
     Active Substance: TAPENTADOL HYDROCHLORIDE
     Indication: Product used for unknown indication

REACTIONS (11)
  - Rheumatoid arthritis [Not Recovered/Not Resolved]
  - Crohn^s disease [Not Recovered/Not Resolved]
  - Renal disorder [Unknown]
  - Near death experience [Recovered/Resolved]
  - Tooth loss [Unknown]
  - Bone graft [Unknown]
  - Dental caries [Recovered/Resolved]
  - Off label use [Unknown]
  - Weight decreased [Unknown]
  - Mastication disorder [Not Recovered/Not Resolved]
  - Pain [Unknown]

NARRATIVE: CASE EVENT DATE: 20010101
